FAERS Safety Report 6763933-7 (Version None)
Quarter: 2010Q2

REPORT INFORMATION
  Report Type: 
  Country: None (occurrence: None)
  Receive Date: 20100608
  Receipt Date: 20100524
  Transmission Date: 20101027
  Serious: Yes (Other)
  Sender: FDA-Public Use
  Company Number: US-001532

PATIENT
  Sex: Female
  Weight: 43.9989 kg

DRUGS (11)
  1. SOMATOVITE TAB [Suspect]
     Indication: HYPOPITUITARISM
     Dosage: 0.6 ML QD SUBCUTANEOUS
     Route: 058
     Dates: start: 20090527
  2. CORTEF [Concomitant]
  3. DDAVP [Concomitant]
  4. FLORINEF [Concomitant]
  5. NORVASC [Concomitant]
  6. SYNTHROID [Concomitant]
  7. ZYRTEC [Concomitant]
  8. VITAMIN D [Concomitant]
  9. DYNACIRC [Concomitant]
  10. AMLODIPINE [Concomitant]
  11. AMLODIPINE [Concomitant]

REACTIONS (8)
  - ANGIOMYOLIPOMA [None]
  - HEADACHE [None]
  - HYPERTENSION [None]
  - NYSTAGMUS [None]
  - PARAESTHESIA [None]
  - PHARYNGITIS STREPTOCOCCAL [None]
  - RENAL NEOPLASM [None]
  - RHINORRHOEA [None]
